FAERS Safety Report 25253150 (Version 1)
Quarter: 2025Q2

REPORT INFORMATION
  Report Type: Report from Study
  Country: BR (occurrence: BR)
  Receive Date: 20250430
  Receipt Date: 20250430
  Transmission Date: 20250717
  Serious: Yes (Other)
  Sender: JOHNSON AND JOHNSON
  Company Number: BR-JNJFOC-20250431552

PATIENT
  Age: 47 Year
  Sex: Female
  Weight: 77 kg

DRUGS (3)
  1. SIMPONI [Suspect]
     Active Substance: GOLIMUMAB
     Indication: Rheumatoid arthritis
     Route: 058
  2. SIMPONI [Suspect]
     Active Substance: GOLIMUMAB
     Indication: Rheumatoid arthritis
     Route: 058
  3. SIMPONI [Suspect]
     Active Substance: GOLIMUMAB

REACTIONS (3)
  - Neoplasm malignant [Unknown]
  - Rheumatoid arthritis [Unknown]
  - Chikungunya virus infection [Unknown]
